FAERS Safety Report 12666856 (Version 2)
Quarter: 2016Q3

REPORT INFORMATION
  Report Type: Report from Study
  Country: US (occurrence: US)
  Receive Date: 20160819
  Receipt Date: 20160829
  Transmission Date: 20161109
  Serious: Yes (Other)
  Sender: FDA-Public Use
  Company Number: US-AMGEN-USASL2016106308

PATIENT
  Age: 58 Year
  Sex: Female

DRUGS (3)
  1. ENBREL [Suspect]
     Active Substance: ETANERCEPT
     Indication: PRODUCT USED FOR UNKNOWN INDICATION
     Dosage: UNK
     Route: 065
  2. ENBREL [Suspect]
     Active Substance: ETANERCEPT
     Dosage: UNK
     Route: 065
  3. ORENCIA [Concomitant]
     Active Substance: ABATACEPT
     Dosage: UNK

REACTIONS (18)
  - Drug ineffective [Unknown]
  - Transfusion [Unknown]
  - Mycobacterium tuberculosis complex test positive [Unknown]
  - Blood pressure decreased [Unknown]
  - Knee operation [Unknown]
  - Nerve compression [Unknown]
  - Fibromyalgia [Unknown]
  - Blood glucose decreased [Unknown]
  - Infusion site extravasation [Unknown]
  - Blood iron decreased [Unknown]
  - Peripheral swelling [Unknown]
  - Gastrooesophageal reflux disease [Unknown]
  - Contusion [Unknown]
  - Hiatus hernia [Unknown]
  - Limb operation [Unknown]
  - Blood potassium decreased [Unknown]
  - Pain [Unknown]
  - Hand deformity [Unknown]
